FAERS Safety Report 12820469 (Version 1)
Quarter: 2016Q4

REPORT INFORMATION
  Report Type: Report from Study
  Country: US (occurrence: US)
  Receive Date: 20161006
  Receipt Date: 20161006
  Transmission Date: 20170207
  Serious: Yes (Hospitalization)
  Sender: FDA-Public Use
  Company Number: US-PFIZER INC-2016402472

PATIENT
  Age: 64 Year
  Sex: Female
  Weight: 77 kg

DRUGS (18)
  1. ASPIRIN /00002701/ [Concomitant]
     Active Substance: ASPIRIN
     Indication: CARDIOVASCULAR EVENT PROPHYLAXIS
     Dosage: 81 MG, DAILY
     Dates: start: 20140101
  2. OXYBUTYNIN CHLORIDE. [Concomitant]
     Active Substance: OXYBUTYNIN CHLORIDE
     Indication: MICTURITION URGENCY
     Dosage: 10 MG, PRN
     Route: 048
     Dates: start: 201506
  3. OXYCONTIN [Concomitant]
     Active Substance: OXYCODONE HYDROCHLORIDE
     Indication: PAIN
     Dosage: 20 MG 1 TAB, Q12HR
     Route: 048
     Dates: start: 201601
  4. IMODIUM A-D [Concomitant]
     Active Substance: LOPERAMIDE HYDROCHLORIDE
     Indication: DIARRHOEA
     Dosage: 2 MG (OF 2 MG) TABLET 6X/D, PRN
     Route: 048
     Dates: start: 20160629
  5. PROCHLORPERAZINE MALEATE. [Concomitant]
     Active Substance: PROCHLORPERAZINE MALEATE
     Indication: NAUSEA
     Dosage: 10 MG (OF 10 MG) Q 6 HOURS PRN
     Route: 048
     Dates: start: 20160629
  6. MIRALAX [Concomitant]
     Active Substance: POLYETHYLENE GLYCOL 3350
     Indication: CONSTIPATION
     Dosage: POWDER 1 SOUP SPOON, DAILY
     Dates: start: 2015
  7. PALBOCICLIB [Suspect]
     Active Substance: PALBOCICLIB
     Indication: SQUAMOUS CELL CARCINOMA OF THE VAGINA
     Dosage: 100 MG, DAILY X 7 DAYS
     Route: 048
     Dates: start: 20160621, end: 20160823
  8. PALBOCICLIB [Suspect]
     Active Substance: PALBOCICLIB
     Indication: COLORECTAL CANCER
  9. 5-FU [Suspect]
     Active Substance: FLUOROURACIL
     Indication: COLORECTAL CANCER
  10. MVI [Concomitant]
     Active Substance: VITAMINS
     Indication: NUTRITIONAL SUPPLEMENTATION
     Dosage: 1 TAB, DAILY
     Dates: start: 2014
  11. MAGIC MOUTH WASH [Concomitant]
     Active Substance: ALUMINUM HYDROXIDE\DIMETHICONE\DIPHENHYDRAMINE\LIDOCAINE\MAGNESIUM HYDROXIDE
     Indication: STOMATITIS
     Dosage: 5 ML SYRUP MOUTH/THROAT 5X/D FOR 20 WEEKS PRN
     Dates: start: 20160629
  12. IRON [Concomitant]
     Active Substance: IRON
     Dosage: 1 TABLET, DAILY
  13. EMLA [Concomitant]
     Active Substance: LIDOCAINE\PRILOCAINE
     Indication: CATHETER SITE PAIN
     Dosage: 2.5 G (OF 2.5-2.5 %} CREAM Q 2 WEEKS PRN
     Route: 061
     Dates: start: 20160629
  14. CARVEDILOL. [Concomitant]
     Active Substance: CARVEDILOL
     Indication: HYPERTENSION
     Dosage: 3.125 MG, BID
     Route: 048
     Dates: start: 20160101
  15. OXYCODONE HYDROCHLORIDE. [Concomitant]
     Active Substance: OXYCODONE HYDROCHLORIDE
     Indication: PAIN
     Dosage: 5 MG 2 TAB, PRN Q6HR, 1-2 X A DAY
     Route: 048
     Dates: start: 201601
  16. 5-FU [Suspect]
     Active Substance: FLUOROURACIL
     Indication: SQUAMOUS CELL CARCINOMA OF THE VAGINA
     Dosage: 1800 MG/M2, Q 2 WEEKS
     Route: 042
     Dates: start: 20160629, end: 20160811
  17. VITAMIN D /00107901/ [Concomitant]
     Active Substance: ERGOCALCIFEROL
     Indication: NUTRITIONAL SUPPLEMENTATION
     Dosage: 1000 U, DAILY
     Route: 048
     Dates: start: 20150101
  18. ONDANSETRON HCL [Concomitant]
     Active Substance: ONDANSETRON HYDROCHLORIDE
     Indication: NAUSEA
     Dosage: 8 MG (OF 8 MG) Q 8 HOURS PRN
     Route: 048
     Dates: start: 20160629

REACTIONS (1)
  - Urosepsis [Recovered/Resolved]

NARRATIVE: CASE EVENT DATE: 20160823
